FAERS Safety Report 4598781-X (Version None)
Quarter: 2005Q1

REPORT INFORMATION
  Report Type: 
  Country: None (occurrence: None)
  Receive Date: 20050301
  Receipt Date: 20050301
  Transmission Date: 20050727
  Serious: Yes (Other)
  Sender: FDA-Public Use
  Company Number: None

PATIENT
  Age: 33 Year
  Sex: Female
  Weight: 52.1637 kg

DRUGS (2)
  1. LEVAQUIN [Suspect]
     Indication: INFECTION
     Dosage: 500 MG  DAILY   INTRAVENOU
     Route: 042
     Dates: start: 20050114, end: 20050119
  2. CIPRO [Suspect]
     Indication: INFECTION
     Dosage: CIPPRO   DAILY   ORAL
     Route: 048
     Dates: start: 20050120, end: 20050127

REACTIONS (5)
  - ACTIVITIES OF DAILY LIVING IMPAIRED [None]
  - ARTHRALGIA [None]
  - EYE MOVEMENT DISORDER [None]
  - GASTROINTESTINAL INFECTION [None]
  - POST PROCEDURAL COMPLICATION [None]
